FAERS Safety Report 6163473-2 (Version None)
Quarter: 2009Q2

REPORT INFORMATION
  Report Type: 
  Country: None (occurrence: None)
  Receive Date: 20090422
  Receipt Date: 20030310
  Transmission Date: 20091009
  Serious: No
  Sender: FDA-Public Use
  Company Number: US-SOLVAY-00203000664

PATIENT
  Sex: Female

DRUGS (3)
  1. ANDROGEL [Suspect]
     Indication: ACCIDENTAL EXPOSURE
     Dosage: DAILY DOSE: UNK.
     Route: 062
  2. EFFEXOR [Concomitant]
     Indication: ILL-DEFINED DISORDER
     Dosage: DAILY DOSE: UNK.
     Route: 048
     Dates: end: 20030301
  3. XANAX [Concomitant]
     Indication: ILL-DEFINED DISORDER
     Dosage: DAILY DOSE: UNK.
     Route: 048

REACTIONS (7)
  - ACNE [None]
  - AGGRESSION [None]
  - DYSPNOEA [None]
  - HEADACHE [None]
  - HYPERTONIA [None]
  - INSOMNIA [None]
  - NAUSEA [None]
